FAERS Safety Report 9417307 (Version 1)
Quarter: 2013Q3

REPORT INFORMATION
  Report Type: Spontaneous
  Country: US (occurrence: US)
  Receive Date: 20130724
  Receipt Date: 20130724
  Transmission Date: 20140515
  Serious: No
  Sender: FDA-Public Use
  Company Number: US-BRISTOL-MYERS SQUIBB COMPANY-18910992

PATIENT
  Age: 84 Year
  Sex: Female
  Weight: 82.99 kg

DRUGS (2)
  1. WARFARIN SODIUM [Suspect]
  2. ELIQUIS [Suspect]
     Indication: ATRIAL FIBRILLATION

REACTIONS (1)
  - Contusion [Unknown]
